FAERS Safety Report 8603582-9 (Version None)
Quarter: 2012Q3

REPORT INFORMATION
  Report Type: 
  Country: None (occurrence: None)
  Receive Date: 20120817
  Receipt Date: 20120813
  Transmission Date: 20120928
  Serious: Yes (Death)
  Sender: FDA-Public Use
  Company Number: US-ASTRAZENECA-2012SE48913

PATIENT
  Age: 68 Year
  Sex: Female
  Weight: 77.6 kg

DRUGS (13)
  1. SYMBICORT [Suspect]
     Route: 055
  2. THEOPHYLLINE [Concomitant]
  3. LEVOTHROID [Concomitant]
  4. PRILOSEC [Suspect]
     Dosage: 2D
     Route: 048
  5. PREDNISONE TAB [Concomitant]
  6. SPIRIVA [Concomitant]
  7. PROZAC [Concomitant]
     Dosage: OD
  8. WARFARIN SODIUM [Concomitant]
     Dosage: 5
  9. SINGULAIR [Concomitant]
     Dosage: OD
  10. ETHADIONE [Concomitant]
  11. DOXYCYCLINE HCL [Concomitant]
  12. ALBUTEROL [Concomitant]
  13. LAMICTAL [Concomitant]
     Dosage: 4D

REACTIONS (5)
  - BRONCHITIS [None]
  - DYSPEPSIA [None]
  - CHRONIC OBSTRUCTIVE PULMONARY DISEASE [None]
  - DEATH [None]
  - HYPOTHYROIDISM [None]
